FAERS Safety Report 8854751 (Version 3)
Quarter: 2013Q2

REPORT INFORMATION
  Report Type: Spontaneous
  Country: US (occurrence: US)
  Receive Date: 20121023
  Receipt Date: 20130506
  Transmission Date: 20140414
  Serious: Yes (Death, Hospitalization)
  Sender: FDA-Public Use
  Company Number: US-BRISTOL-MYERS SQUIBB COMPANY-17043092

PATIENT
  Age: 55 Year
  Sex: Male

DRUGS (8)
  1. SPRYCEL [Suspect]
     Indication: ACUTE LYMPHOCYTIC LEUKAEMIA
     Dosage: HELD ON 20AUG12
     Route: 048
     Dates: start: 20120804
  2. CYTOXAN [Suspect]
  3. VANCOMYCIN [Suspect]
     Indication: PYREXIA
     Route: 042
  4. VANCOMYCIN [Suspect]
     Indication: NEUTROPENIA
     Route: 042
  5. CYTARABINE [Suspect]
     Indication: ACUTE LYMPHOCYTIC LEUKAEMIA
     Dosage: 4620MG
     Route: 042
  6. METHOTREXATE [Suspect]
     Indication: ACUTE LYMPHOCYTIC LEUKAEMIA
     Dosage: ORAL?2310MG
     Route: 037
  7. VINCRISTINE [Suspect]
     Indication: ACUTE LYMPHOCYTIC LEUKAEMIA
     Route: 042
  8. LEUCOVORIN [Suspect]
     Indication: ACUTE LYMPHOCYTIC LEUKAEMIA
     Dosage: 25MG FOR NEXT 4 DOSES OR UNTIL TOLD TO STOP
     Route: 048

REACTIONS (3)
  - Death [Fatal]
  - Erythema multiforme [Unknown]
  - Febrile neutropenia [Unknown]
